FAERS Safety Report 9580495 (Version 5)
Quarter: 2014Q1

REPORT INFORMATION
  Report Type: Spontaneous
  Country: US (occurrence: US)
  Receive Date: 20131002
  Receipt Date: 20140324
  Transmission Date: 20141002
  Serious: Yes (Hospitalization, Other)
  Sender: FDA-Public Use
  Company Number: US-009507513-1203USA00033

PATIENT
  Sex: Female
  Weight: 56.24 kg

DRUGS (4)
  1. FOSAMAX [Suspect]
     Indication: SENILE OSTEOPOROSIS
     Dosage: 70 MG, QW
     Route: 048
  2. ALENDRONATE SODIUM [Suspect]
     Indication: OSTEOPOROSIS
     Dosage: 70 MG, QD
     Route: 048
  3. ALENDRONATE SODIUM [Suspect]
     Dosage: 70 MG, QW
     Route: 048
  4. ACTONEL [Suspect]
     Indication: OSTEOPOROSIS
     Dosage: 35 MG, QW
     Route: 048
     Dates: start: 200104, end: 200805

REACTIONS (41)
  - Intramedullary rod insertion [Unknown]
  - Foot operation [Unknown]
  - Foot operation [Unknown]
  - Medical device implantation [Unknown]
  - Bone cancer metastatic [Not Recovered/Not Resolved]
  - Aortic bypass [Unknown]
  - Breast prosthesis implantation [Unknown]
  - Femur fracture [Recovered/Resolved]
  - Low turnover osteopathy [Unknown]
  - Vitamin D deficiency [Unknown]
  - Hypercholesterolaemia [Unknown]
  - Angiopathy [Unknown]
  - Arthritis [Unknown]
  - Inappropriate schedule of drug administration [Unknown]
  - Vascular operation [Unknown]
  - Gastrointestinal disorder [Unknown]
  - Spondylolysis [Not Recovered/Not Resolved]
  - Intervertebral disc disorder [Unknown]
  - Tendonitis [Unknown]
  - Enthesopathy [Unknown]
  - Bursitis [Not Recovered/Not Resolved]
  - Muscle contracture [Unknown]
  - Insomnia [Unknown]
  - Fatigue [Unknown]
  - Mental status changes [Unknown]
  - Viral infection [Unknown]
  - Chest pain [Unknown]
  - Bronchitis chronic [Not Recovered/Not Resolved]
  - Physical thyroid examination abnormal [Unknown]
  - Positron emission tomogram abnormal [Unknown]
  - Chronic obstructive pulmonary disease [Not Recovered/Not Resolved]
  - Essential hypertension [Unknown]
  - Adenoidectomy [Unknown]
  - Tonsillectomy [Unknown]
  - Female sterilisation [Unknown]
  - Type V hyperlipidaemia [Unknown]
  - Peripheral vascular disorder [Unknown]
  - Back pain [Not Recovered/Not Resolved]
  - Pain in extremity [Unknown]
  - Pain in extremity [Unknown]
  - Diarrhoea [Unknown]
